FAERS Safety Report 14447984 (Version 1)
Quarter: 2018Q1

REPORT INFORMATION
  Report Type: Spontaneous
  Country: IT (occurrence: IT)
  Receive Date: 20180126
  Receipt Date: 20180126
  Transmission Date: 20180509
  Serious: Yes (Other)
  Sender: FDA-Public Use
  Company Number: IT-BAXALTA-2016BLT004178AA

PATIENT
  Age: 66 Year
  Sex: Male

DRUGS (3)
  1. DELTACORT [Concomitant]
     Indication: NON-HODGKIN^S LYMPHOMA
     Dosage: 1 UNIT, UNK
     Route: 048
     Dates: start: 20160201, end: 20160609
  2. SUBCUVIA [Suspect]
     Active Substance: HUMAN IMMUNOGLOBULIN G
     Indication: THROMBOCYTOPENIA
     Dosage: 40 ML, 1X A WEEK
     Route: 058
     Dates: start: 20160404, end: 20160509
  3. SUBCUVIA [Suspect]
     Active Substance: HUMAN IMMUNOGLOBULIN G
     Indication: OFF LABEL USE

REACTIONS (1)
  - Diarrhoea [Recovered/Resolved]

NARRATIVE: CASE EVENT DATE: 20160420
